FAERS Safety Report 16031536 (Version 1)
Quarter: 2019Q1

REPORT INFORMATION
  Report Type: Spontaneous
  Country: US (occurrence: US)
  Receive Date: 20190304
  Receipt Date: 20190304
  Transmission Date: 20190418
  Serious: No
  Sender: FDA-Public Use
  Company Number: US-IMPAX LABORATORIES, LLC-2018-IPXL-01665

PATIENT
  Age: 63 Year
  Sex: Male

DRUGS (5)
  1. RYTARY [Suspect]
     Active Substance: CARBIDOPA\LEVODOPA
     Dosage: 48.75/195MG, 3 CAPSULES, THREE TIMES A DAY
     Route: 048
     Dates: start: 2018
  2. RYTARY [Suspect]
     Active Substance: CARBIDOPA\LEVODOPA
     Indication: PARKINSON^S DISEASE
     Dosage: UNK
     Route: 048
     Dates: start: 201804, end: 2018
  3. CANNABIDIOL (CBD) [Concomitant]
     Indication: SLEEP DISORDER
     Dosage: UNK, PRN
     Route: 048
     Dates: start: 2017
  4. PROBIOTIC [Concomitant]
     Active Substance: PROBIOTICS NOS
     Indication: SUPPLEMENTATION THERAPY
     Dosage: 1 DF, PRN
     Route: 048
     Dates: start: 2016
  5. VITAMIN B-6 (B6 PHOSPHATE) [Concomitant]
     Indication: ANXIETY
     Dosage: 2 TABLETS, QD
     Route: 048
     Dates: start: 2017

REACTIONS (5)
  - Memory impairment [Not Recovered/Not Resolved]
  - Dyskinesia [Not Recovered/Not Resolved]
  - Somnolence [Not Recovered/Not Resolved]
  - Treatment noncompliance [Not Recovered/Not Resolved]
  - On and off phenomenon [Not Recovered/Not Resolved]

NARRATIVE: CASE EVENT DATE: 2018
